FAERS Safety Report 9619583 (Version 1)
Quarter: 2013Q4

REPORT INFORMATION
  Report Type: Spontaneous
  Country: US (occurrence: US)
  Receive Date: 20131014
  Receipt Date: 20131014
  Transmission Date: 20140711
  Serious: Yes (Other)
  Sender: FDA-Public Use
  Company Number: US-MALLINCKRODT-T201304543

PATIENT
  Age: 25 Year
  Sex: Male

DRUGS (3)
  1. GABLOFEN [Suspect]
     Indication: MUSCLE SPASTICITY
     Dosage: 90 MCG PER DAY
     Route: 037
     Dates: start: 201309
  2. GABLOFEN [Suspect]
     Dosage: 75 MCG PER DAY
     Route: 037
     Dates: end: 201309
  3. ZOLOFT [Suspect]
     Indication: PRODUCT USED FOR UNKNOWN INDICATION
     Route: 065

REACTIONS (1)
  - Psychotic disorder [Not Recovered/Not Resolved]
